FAERS Safety Report 16137720 (Version 2)
Quarter: 2019Q2

REPORT INFORMATION
  Report Type: Report from Study
  Country: BR (occurrence: BR)
  Receive Date: 20190401
  Receipt Date: 20190418
  Transmission Date: 20190711
  Serious: Yes (Hospitalization)
  Sender: FDA-Public Use
  Company Number: BR-BIOGEN-2019BI00716785

PATIENT
  Age: 40 Year
  Sex: Female

DRUGS (2)
  1. SYNTHROID [Concomitant]
     Active Substance: LEVOTHYROXINE SODIUM
     Indication: PRODUCT USED FOR UNKNOWN INDICATION
     Route: 065
  2. TECFIDERA [Suspect]
     Active Substance: DIMETHYL FUMARATE
     Indication: MULTIPLE SCLEROSIS
     Route: 048
     Dates: start: 201705

REACTIONS (7)
  - Enterocolitis [Unknown]
  - Ligament sprain [Unknown]
  - Decreased immune responsiveness [Unknown]
  - Lymphopenia [Unknown]
  - Multiple sclerosis relapse [Not Recovered/Not Resolved]
  - Dysphagia [Recovered/Resolved]
  - Adnexa uteri cyst [Unknown]

NARRATIVE: CASE EVENT DATE: 201805
